FAERS Safety Report 9148952 (Version 1)
Quarter: 2013Q1

REPORT INFORMATION
  Report Type: Spontaneous
  Country: ES (occurrence: None)
  Receive Date: 20130131
  Receipt Date: 20130131
  Transmission Date: 20140127
  Serious: Yes (Other)
  Sender: FDA-Public Use
  Company Number: 2012-14290

PATIENT
  Age: 61 Year
  Sex: Female

DRUGS (1)
  1. ACYCLOVIR [Suspect]
     Indication: HERPES ZOSTER

REACTIONS (4)
  - Neurotoxicity [None]
  - Psychotic disorder [None]
  - Hallucination, visual [None]
  - Dysarthria [None]
